FAERS Safety Report 7602201-8 (Version None)
Quarter: 2011Q3

REPORT INFORMATION
  Report Type: 
  Country: None (occurrence: None)
  Receive Date: 20110711
  Receipt Date: 20110701
  Transmission Date: 20111222
  Serious: Yes (Death, Other)
  Sender: FDA-Public Use
  Company Number: JP-AMGEN-JPNCT2011017865

PATIENT
  Age: 63 Year
  Sex: Female
  Weight: 61 kg

DRUGS (10)
  1. RAMELTEON [Concomitant]
     Route: 048
  2. EMEND [Concomitant]
     Dosage: UNK
     Route: 048
  3. PRIMPERAN TAB [Concomitant]
     Dosage: UNK
     Route: 048
  4. CORTICOSTEROIDS [Concomitant]
     Indication: PROPHYLAXIS
     Dosage: UNK
     Route: 065
  5. PANITUMUMAB [Suspect]
     Indication: COLORECTAL CANCER METASTATIC
     Dosage: 6 MG/KG, Q2WK
     Route: 041
     Dates: start: 20100804, end: 20101216
  6. FLUOROURACIL [Suspect]
     Route: 041
     Dates: start: 20100804, end: 20101216
  7. FLUOROURACIL [Suspect]
     Indication: COLORECTAL CANCER
     Route: 040
     Dates: start: 20100804, end: 20101216
  8. LEUCOVORIN CALCIUM [Suspect]
     Indication: COLORECTAL CANCER
     Route: 041
     Dates: start: 20100804, end: 20101216
  9. DECADRON [Concomitant]
     Route: 048
  10. IRINOTECAN HCL [Suspect]
     Indication: COLORECTAL CANCER
     Route: 041
     Dates: start: 20100804, end: 20101216

REACTIONS (6)
  - CONJUNCTIVITIS [None]
  - STOMATITIS [None]
  - DERMATITIS ACNEIFORM [None]
  - NEUTROPENIA [None]
  - COLORECTAL CANCER [None]
  - NASOPHARYNGITIS [None]
